FAERS Safety Report 15679068 (Version 8)
Quarter: 2020Q1

REPORT INFORMATION
  Report Type: Spontaneous
  Country: TW (occurrence: TW)
  Receive Date: 20181203
  Receipt Date: 20200206
  Transmission Date: 20200409
  Serious: Yes (Hospitalization, Other)
  Sender: FDA-Public Use
  Company Number: TW-AMGEN-TWNSP2018171112

PATIENT
  Age: 75 Year
  Sex: Female

DRUGS (9)
  1. ENBREL [Suspect]
     Active Substance: ETANERCEPT
     Dosage: UNK
     Route: 042
     Dates: end: 20190115
  2. LIVALO [Concomitant]
     Active Substance: PITAVASTATIN CALCIUM
     Dosage: 1 DOSAGE FORM, QD
  3. ENBREL [Suspect]
     Active Substance: ETANERCEPT
     Dosage: UNK
     Route: 042
  4. ARHEUMA [Concomitant]
     Dosage: 20 MILLIGRAM, QD
  5. ENBREL [Suspect]
     Active Substance: ETANERCEPT
     Indication: RHEUMATOID ARTHRITIS
     Dosage: 25 MG, 2X/WEEK
     Route: 042
     Dates: start: 201505
  6. SALAZINE [Concomitant]
     Active Substance: SULFASALAZINE
     Dosage: 2 MILLIGRAM, QD
  7. ENBREL [Suspect]
     Active Substance: ETANERCEPT
     Dosage: 25 MG, Q4DAY
     Route: 042
     Dates: end: 2018
  8. PREDNISOLONE. [Concomitant]
     Active Substance: PREDNISOLONE
     Dosage: 1 DOSAGE FORM, BID
  9. CELEBREX [Concomitant]
     Active Substance: CELECOXIB
     Dosage: 200 MILLIGRAM, QD

REACTIONS (10)
  - Disease recurrence [Recovering/Resolving]
  - Anastomotic ulcer [Unknown]
  - Infection [Unknown]
  - Product use issue [Unknown]
  - Erythema [Recovered/Resolved]
  - Duodenal ulcer [Unknown]
  - Off label use [Unknown]
  - Peripheral swelling [Recovered/Resolved]
  - Cellulitis [Recovering/Resolving]
  - Feeling hot [Unknown]

NARRATIVE: CASE EVENT DATE: 201505
